FAERS Safety Report 19950642 (Version 2)
Quarter: 2021Q4

REPORT INFORMATION
  Report Type: Spontaneous
  Country: JP (occurrence: JP)
  Receive Date: 20211013
  Receipt Date: 20211101
  Transmission Date: 20220303
  Serious: Yes (Hospitalization)
  Sender: FDA-Public Use
  Company Number: JP-EISAI-202105911_FYC_P_1

PATIENT
  Age: 5 Year
  Sex: Male

DRUGS (3)
  1. FYCOMPA [Suspect]
     Active Substance: PERAMPANEL
     Indication: Epilepsy
     Dosage: APPROPRIATELY INCREASED OR DECREASED
     Route: 048
     Dates: start: 20190919, end: 20210228
  2. FYCOMPA [Suspect]
     Active Substance: PERAMPANEL
     Indication: Epileptic encephalopathy
     Route: 048
     Dates: start: 20210301, end: 20210327
  3. FYCOMPA [Suspect]
     Active Substance: PERAMPANEL
     Route: 048
     Dates: start: 20210328

REACTIONS (3)
  - Bronchial secretion retention [Recovering/Resolving]
  - Pneumonia [Recovering/Resolving]
  - Hypersomnia [Recovering/Resolving]

NARRATIVE: CASE EVENT DATE: 20210301
